FAERS Safety Report 14228863 (Version 1)
Quarter: 2017Q4

REPORT INFORMATION
  Report Type: Spontaneous
  Country: US (occurrence: None)
  Receive Date: 20171124
  Receipt Date: 20171124
  Transmission Date: 20180321
  Serious: No
  Sender: FDA-Public Use
  Company Number: None

PATIENT
  Sex: Female

DRUGS (1)
  1. HUMIRA [Suspect]
     Active Substance: ADALIMUMAB
     Indication: PSORIASIS
     Dosage: 40 MG EVERY 2 WEEKS SQ
     Route: 058
     Dates: start: 20160126

REACTIONS (3)
  - Deja vu [None]
  - Hot flush [None]
  - Seizure [None]
